FAERS Safety Report 10276522 (Version 1)
Quarter: 2014Q3

REPORT INFORMATION
  Report Type: Spontaneous
  Country: CA (occurrence: CA)
  Receive Date: 20140703
  Receipt Date: 20140703
  Transmission Date: 20150326
  Serious: Yes (Other)
  Sender: FDA-Public Use
  Company Number: CA-PFIZER INC-2014177382

PATIENT
  Age: 80 Year
  Sex: Male
  Weight: 68.03 kg

DRUGS (7)
  1. LYRICA [Suspect]
     Active Substance: PREGABALIN
     Dosage: 100 MG, UNK
     Dates: start: 201406, end: 201406
  2. DILAUDID [Suspect]
     Active Substance: HYDROMORPHONE HYDROCHLORIDE
     Dosage: UNK
     Dates: start: 2014
  3. ADVIL [Suspect]
     Active Substance: IBUPROFEN
     Dosage: UNK
     Dates: end: 20140623
  4. FLORINEF ACETATE [Concomitant]
     Active Substance: FLUDROCORTISONE ACETATE
     Indication: HYPERTENSION
     Dosage: 1MG (1 TABLET) ON ONE DAY, 1 MG 2X/DAY ON ALTERNATE DAYS
  5. LYRICA [Suspect]
     Active Substance: PREGABALIN
     Indication: HERPES ZOSTER
     Dosage: 25 MG, 3X/DAY
     Dates: start: 20140520, end: 2014
  6. LYRICA [Suspect]
     Active Substance: PREGABALIN
     Dosage: 25 MG, 3X/DAY
     Dates: start: 201406
  7. SYNTHROID [Concomitant]
     Active Substance: LEVOTHYROXINE SODIUM
     Indication: THYROID DISORDER
     Dosage: 75 UG, DAILY

REACTIONS (6)
  - Fear [Unknown]
  - Loss of consciousness [Unknown]
  - Pain [Not Recovered/Not Resolved]
  - Dizziness [Unknown]
  - Disorientation [Unknown]
  - Somnolence [Unknown]

NARRATIVE: CASE EVENT DATE: 2014
